FAERS Safety Report 8218761-2 (Version None)
Quarter: 2012Q1

REPORT INFORMATION
  Report Type: 
  Country: None (occurrence: None)
  Receive Date: 20120319
  Receipt Date: 20120312
  Transmission Date: 20120608
  Serious: Yes (Other)
  Sender: FDA-Public Use
  Company Number: PHEH2012US005558

PATIENT
  Sex: Male
  Weight: 72.562 kg

DRUGS (6)
  1. GILENYA [Suspect]
     Indication: RELAPSING-REMITTING MULTIPLE SCLEROSIS
     Dosage: 0.5 MG, QD
     Route: 048
     Dates: start: 20110617
  2. MULTI-TABS [Concomitant]
     Dosage: UNK UKN, UNK
  3. CIPROFLOXACIN HYDROCHLORIDE [Concomitant]
     Dosage: 250 MG, UNK
  4. GILENYA [Suspect]
     Dosage: 0.5 MG, QOD
     Dates: start: 20120307
  5. TYLENOL [Concomitant]
     Dosage: 650 MG, UNK
  6. MOTRIN [Concomitant]
     Dosage: 400 MG, UNK

REACTIONS (4)
  - LYMPHOCYTE COUNT DECREASED [None]
  - URINARY TRACT INFECTION [None]
  - WHITE BLOOD CELL COUNT INCREASED [None]
  - INCORRECT DOSE ADMINISTERED [None]
